FAERS Safety Report 8058088-5 (Version None)
Quarter: 2012Q1

REPORT INFORMATION
  Report Type: 
  Country: None (occurrence: None)
  Receive Date: 20120118
  Receipt Date: 20120118
  Transmission Date: 20120608
  Serious: Yes (Hospitalization)
  Sender: FDA-Public Use
  Company Number: None

PATIENT
  Age: 66 Year
  Sex: Male
  Weight: 86 kg

DRUGS (1)
  1. SORAFENIB [Suspect]
     Indication: HEPATIC NEOPLASM MALIGNANT
     Dosage: 400MG PO DAILY
     Route: 048
     Dates: start: 20100108

REACTIONS (2)
  - CARDIAC FAILURE ACUTE [None]
  - LEFT VENTRICULAR DYSFUNCTION [None]
